FAERS Safety Report 4599300-4 (Version None)
Quarter: 2005Q1

REPORT INFORMATION
  Report Type: 
  Country: None (occurrence: None)
  Receive Date: 20050303
  Receipt Date: 20050303
  Transmission Date: 20050727
  Serious: Yes (Disabling)
  Sender: FDA-Public Use
  Company Number: None

PATIENT
  Age: 32 Year
  Sex: Female
  Weight: 74.8435 kg

DRUGS (2)
  1. ZOLOFT [Suspect]
     Indication: DRUG WITHDRAWAL SYNDROME
     Dosage: 100MG  DAILY ORAL
     Route: 048
     Dates: start: 19981201, end: 20050301
  2. ZOLOFT [Suspect]
     Indication: POSTPARTUM DEPRESSION
     Dosage: 100MG  DAILY ORAL
     Route: 048
     Dates: start: 19981201, end: 20050301

REACTIONS (8)
  - ABNORMAL DREAMS [None]
  - AGITATION [None]
  - DRUG DEPENDENCE [None]
  - DRUG WITHDRAWAL SYNDROME [None]
  - FEELING ABNORMAL [None]
  - INFLUENZA [None]
  - NERVOUS SYSTEM DISORDER [None]
  - NYSTAGMUS [None]
